FAERS Safety Report 13613970 (Version 2)
Quarter: 2017Q2

REPORT INFORMATION
  Report Type: Spontaneous
  Country: CH (occurrence: CH)
  Receive Date: 20170606
  Receipt Date: 20170609
  Transmission Date: 20170830
  Serious: Yes (Other)
  Sender: FDA-Public Use
  Company Number: PHHY2017CH080360

PATIENT
  Age: 60 Year
  Sex: Male
  Weight: 72 kg

DRUGS (4)
  1. GLIVEC [Suspect]
     Active Substance: IMATINIB MESYLATE
     Indication: ACUTE LYMPHOCYTIC LEUKAEMIA
     Dosage: 300 MG, BID
     Route: 048
     Dates: start: 20150630, end: 20170105
  2. SPRYCEL [Suspect]
     Active Substance: DASATINIB
     Indication: ACUTE LYMPHOCYTIC LEUKAEMIA
     Dosage: 70 MG, QD
     Route: 048
     Dates: start: 20170105
  3. VALCYTE [Suspect]
     Active Substance: VALGANCICLOVIR HYDROCHLORIDE
     Indication: CYTOMEGALOVIRUS COLITIS
     Dosage: 900 MG, BID
     Route: 048
     Dates: start: 20160517
  4. VALACICLOVIR [Suspect]
     Active Substance: VALACYCLOVIR HYDROCHLORIDE
     Indication: PROPHYLACTIC CHEMOTHERAPY
     Dosage: 500 MG, QD
     Route: 048

REACTIONS (9)
  - Rectal haemorrhage [Recovered/Resolved]
  - Hypoalbuminaemia [Recovering/Resolving]
  - Nasal congestion [Recovered/Resolved]
  - Eyelid oedema [Recovered/Resolved]
  - Pancytopenia [Not Recovered/Not Resolved]
  - Cytomegalovirus colitis [Recovering/Resolving]
  - Pleural effusion [Unknown]
  - Diarrhoea [Recovering/Resolving]
  - Weight decreased [Recovering/Resolving]

NARRATIVE: CASE EVENT DATE: 2015
